FAERS Safety Report 13950320 (Version 1)
Quarter: 2017Q3

REPORT INFORMATION
  Report Type: Spontaneous
  Country: US (occurrence: US)
  Receive Date: 20170908
  Receipt Date: 20170908
  Transmission Date: 20171128
  Serious: No
  Sender: FDA-Public Use
  Company Number: US-ROCHE-1131511

PATIENT
  Sex: Male

DRUGS (17)
  1. RITUXAN [Suspect]
     Active Substance: RITUXIMAB
     Route: 050
     Dates: start: 20000222
  2. BENADRYL [Concomitant]
     Active Substance: DIPHENHYDRAMINE HYDROCHLORIDE
     Route: 065
     Dates: start: 20000201
  3. BENADRYL [Concomitant]
     Active Substance: DIPHENHYDRAMINE HYDROCHLORIDE
     Route: 065
     Dates: start: 20000208
  4. LASIX [Concomitant]
     Active Substance: FUROSEMIDE
     Route: 048
  5. ACYCLOVIR. [Concomitant]
     Active Substance: ACYCLOVIR
  6. TYLENOL [Concomitant]
     Active Substance: ACETAMINOPHEN
     Route: 065
     Dates: start: 20000201
  7. RITUXAN [Suspect]
     Active Substance: RITUXIMAB
     Route: 050
     Dates: start: 20000208
  8. RITUXAN [Suspect]
     Active Substance: RITUXIMAB
     Route: 050
     Dates: start: 20000224
  9. TYLENOL [Concomitant]
     Active Substance: ACETAMINOPHEN
     Route: 065
     Dates: start: 20000208
  10. RITUXAN [Suspect]
     Active Substance: RITUXIMAB
     Indication: PLASMA CELL MYELOMA
     Route: 050
     Dates: start: 20000201
  11. RITUXAN [Suspect]
     Active Substance: RITUXIMAB
     Route: 050
     Dates: start: 20000215
  12. DILANTIN [Concomitant]
     Active Substance: PHENYTOIN
  13. TYLENOL [Concomitant]
     Active Substance: ACETAMINOPHEN
     Route: 065
     Dates: start: 20000222
  14. BENADRYL [Concomitant]
     Active Substance: DIPHENHYDRAMINE HYDROCHLORIDE
     Route: 065
     Dates: start: 20000224
  15. BUSULFAN. [Concomitant]
     Active Substance: BUSULFAN
     Route: 065
  16. VANCOMYCIN [Concomitant]
     Active Substance: VANCOMYCIN
  17. ROCEPHIN [Concomitant]
     Active Substance: CEFTRIAXONE SODIUM

REACTIONS (13)
  - Visual impairment [Unknown]
  - Periorbital oedema [Unknown]
  - Abdominal pain [Unknown]
  - Mucosal inflammation [Recovering/Resolving]
  - Oedema peripheral [Unknown]
  - Hypoaesthesia [Unknown]
  - Pain in extremity [Unknown]
  - Nystagmus [Unknown]
  - Diarrhoea [Unknown]
  - Cystitis [Recovered/Resolved]
  - Paraesthesia oral [Unknown]
  - Oedema [Unknown]
  - Rash [Unknown]
